FAERS Safety Report 13097274 (Version 1)
Quarter: 2017Q1

REPORT INFORMATION
  Report Type: Spontaneous
  Country: US (occurrence: US)
  Receive Date: 20170107
  Receipt Date: 20170107
  Transmission Date: 20170428
  Serious: Yes (Disabling, Other)
  Sender: FDA-Public Use
  Company Number: None

PATIENT
  Age: 51 Year
  Sex: Male
  Weight: 77.85 kg

DRUGS (11)
  1. OMEGA 3 ACID [Concomitant]
  2. BUPROPION XL [Concomitant]
     Active Substance: BUPROPION
  3. VITAMIN D3 [Concomitant]
     Active Substance: CHOLECALCIFEROL
  4. OXCARBAZEPINE. [Suspect]
     Active Substance: OXCARBAZEPINE
     Indication: BIPOLAR DISORDER
     Dosage: QUANTITY:90 TABLET(S); TWICE A DAY; ORAL?
     Route: 048
     Dates: start: 20160708, end: 20160714
  5. LISINOPRIL. [Concomitant]
     Active Substance: LISINOPRIL
  6. ZINC. [Concomitant]
     Active Substance: ZINC
  7. MULTIVITAMIN [Concomitant]
     Active Substance: VITAMINS
  8. OXCARBAZEPINE. [Suspect]
     Active Substance: OXCARBAZEPINE
     Indication: ABNORMAL BEHAVIOUR
     Dosage: QUANTITY:90 TABLET(S); TWICE A DAY; ORAL?
     Route: 048
     Dates: start: 20160708, end: 20160714
  9. ATORVASTATIN [Concomitant]
     Active Substance: ATORVASTATIN
  10. FENOFIBRATE. [Concomitant]
     Active Substance: FENOFIBRATE
  11. CULTURELLE [Concomitant]
     Active Substance: LACTOBACILLUS RHAMNOSUS

REACTIONS (5)
  - Nasal congestion [None]
  - Oropharyngeal pain [None]
  - Ear pain [None]
  - Pulmonary congestion [None]
  - Deafness unilateral [None]

NARRATIVE: CASE EVENT DATE: 20160715
